FAERS Safety Report 6006617-5 (Version None)
Quarter: 2008Q4

REPORT INFORMATION
  Report Type: 
  Country: None (occurrence: None)
  Receive Date: 20081217
  Receipt Date: 20081212
  Transmission Date: 20090506
  Serious: Yes (Hospitalization)
  Sender: FDA-Public Use
  Company Number: JP-BRISTOL-MYERS SQUIBB COMPANY-14406318

PATIENT
  Age: 35 Year
  Sex: Male

DRUGS (4)
  1. BARACLUDE [Suspect]
     Indication: HEPATITIS B
     Route: 048
     Dates: start: 20081022, end: 20081028
  2. URSO 250 [Suspect]
     Dosage: 24SEP08-22OCT08:DOSE UNK; 22OCT08-UNK:DOSE 300MG X 3/1DAY
     Route: 048
     Dates: start: 20080924
  3. PREDNISOLONE SODIUM PHOSPHATE [Suspect]
     Route: 054
     Dates: start: 20080924
  4. NEO-MINOPHAGEN C [Suspect]
     Dates: start: 20081022, end: 20081104

REACTIONS (1)
  - EOSINOPHIL COUNT INCREASED [None]
